FAERS Safety Report 18932168 (Version 3)
Quarter: 2021Q3

REPORT INFORMATION
  Report Type: Other
  Country: CA (occurrence: CA)
  Receive Date: 20210223
  Receipt Date: 20210724
  Transmission Date: 20211014
  Serious: Yes (Other)
  Sender: FDA-Public Use
  Company Number: CA-CELLTRION INC.-2021CA002124

PATIENT

DRUGS (17)
  1. METHYLPREDNISOLONE SODIUM SUCCINATE. [Concomitant]
     Active Substance: METHYLPREDNISOLONE SODIUM SUCCINATE
     Indication: ANTIFUNGAL PROPHYLAXIS
     Dosage: 100.0 MILLIGRAM
     Route: 042
  2. TYLENOL [Concomitant]
     Active Substance: ACETAMINOPHEN
     Dosage: 600.0 MILLIGRAM
     Route: 048
  3. ADVIL [Concomitant]
     Active Substance: IBUPROFEN
  4. DROSPIRENONE/ETHINYLESTRADIOL [Concomitant]
     Active Substance: DROSPIRENONE\ETHINYL ESTRADIOL
  5. CELLCEPT [Suspect]
     Active Substance: MYCOPHENOLATE MOFETIL\MYCOPHENOLATE MOFETIL HYDROCHLORIDE
     Indication: INFLAMMATORY PSEUDOTUMOUR
     Dosage: 2 EVERY 1 DAY (DURATION: ?60)
     Route: 048
  6. AMITRIPTYLINE [Concomitant]
     Active Substance: AMITRIPTYLINE
     Dosage: 50.0 MILLIGRAM, 1 EVERY 1 DAYS
     Route: 065
  7. VERAPAMIL [Concomitant]
     Active Substance: VERAPAMIL HYDROCHLORIDE
     Dosage: 120.0 MILLIGRAM, 3 EVERY 1 DAYS
     Route: 065
  8. RITUXIMAB (UNKNOWN) [Suspect]
     Active Substance: RITUXIMAB
     Indication: INFLAMMATORY PSEUDOTUMOUR
     Dosage: 711.0 MILLIGRAM, 1 EVERY 1 WEEK (DOSAGE FORM: SOLUTION FOR INFUSION)
     Route: 042
  9. FROVATRIPTAN. [Concomitant]
     Active Substance: FROVATRIPTAN
     Indication: MIGRAINE
     Dosage: 2.5 MILLIGRAM
     Route: 065
  10. SOLU?MEDROL [Concomitant]
     Active Substance: METHYLPREDNISOLONE SODIUM SUCCINATE
     Indication: PREMEDICATION
     Dosage: 100 MILLIGRAM
     Route: 042
  11. CELLCEPT [Suspect]
     Active Substance: MYCOPHENOLATE MOFETIL\MYCOPHENOLATE MOFETIL HYDROCHLORIDE
     Indication: INFLAMMATORY PSEUDOTUMOUR
     Dosage: 1 GRAM, 2 EVERY 1 DAY
     Route: 048
  12. BENADRYL [Concomitant]
     Active Substance: DIPHENHYDRAMINE HYDROCHLORIDE
     Indication: PREMEDICATION
     Dosage: 50.0 MILLIGRAM
     Route: 048
  13. VITAMIN B2 [Concomitant]
     Active Substance: RIBOFLAVIN
  14. RITUXIMAB (UNKNOWN) [Suspect]
     Active Substance: RITUXIMAB
     Indication: VASCULITIS
     Dosage: 711.0 MILLIGRAM, 1 EVERY 1 WEEK (DOSAGE FORM: SOLUTION FOR INFUSION)
     Route: 042
  15. RITUXIMAB (UNKNOWN) [Suspect]
     Active Substance: RITUXIMAB
     Dosage: 700.0 MILLIGRAM, 1 EVERY 1 WEEK
     Route: 042
  16. PREDNISONE. [Suspect]
     Active Substance: PREDNISONE
     Indication: INFLAMMATORY PSEUDOTUMOUR
     Dosage: 20.0 MILLIGRAM, 1 EVERY 1 DAYS
     Route: 065
  17. SEPTRA [Concomitant]
     Active Substance: SULFAMETHOXAZOLE\TRIMETHOPRIM
     Indication: ANTIFUNGAL PROPHYLAXIS
     Dosage: 3 EVERY 1 DAYS
     Route: 065

REACTIONS (14)
  - Intentional product use issue [Recovered/Resolved]
  - Infusion related reaction [Recovered/Resolved]
  - Blood pressure diastolic abnormal [Recovered/Resolved]
  - Eye pain [Recovered/Resolved]
  - Eye swelling [Recovered/Resolved]
  - Heart rate increased [Recovered/Resolved]
  - Off label use [Recovered/Resolved]
  - Diplopia [Recovered/Resolved]
  - Hypertension [Recovered/Resolved]
  - Eye inflammation [Recovered/Resolved]
  - Blood pressure diastolic increased [Recovered/Resolved]
  - Blood pressure fluctuation [Recovered/Resolved]
  - Eye haemorrhage [Recovered/Resolved]
  - Off label use [Unknown]
